FAERS Safety Report 7683160-9 (Version None)
Quarter: 2011Q3

REPORT INFORMATION
  Report Type: 
  Country: None (occurrence: None)
  Receive Date: 20110815
  Receipt Date: 20110804
  Transmission Date: 20111222
  Serious: Yes (Other)
  Sender: FDA-Public Use
  Company Number: CN-ASTRAZENECA-2011SE46881

PATIENT
  Age: 47 Year
  Sex: Male

DRUGS (2)
  1. GLUCOSE [Concomitant]
     Dosage: 500 ML
     Route: 042
  2. LIDOCAINE [Suspect]
     Dosage: 200 MG
     Route: 042

REACTIONS (1)
  - DRUG DEPENDENCE [None]
